FAERS Safety Report 5755856-7 (Version None)
Quarter: 2008Q2

REPORT INFORMATION
  Report Type: 
  Country: None (occurrence: None)
  Receive Date: 20080528
  Receipt Date: 20080515
  Transmission Date: 20081010
  Serious: Yes (Other)
  Sender: FDA-Public Use
  Company Number: 2008S1008435

PATIENT
  Age: 45 Year
  Sex: Male
  Weight: 90.7194 kg

DRUGS (7)
  1. FENTANYL TRANSDERMAL SYSTEM [Suspect]
     Indication: CYSTITIS INTERSTITIAL
     Dosage: 225 UG; EVERY HOUR; TRANSDERMAL
     Route: 062
     Dates: start: 20080101, end: 20080509
  2. FENTANYL TRANSDERMAL SYSTEM [Suspect]
     Indication: FIBROMYALGIA
     Dosage: 225 UG; EVERY HOUR; TRANSDERMAL
     Route: 062
     Dates: start: 20080101, end: 20080509
  3. FENTANYL TRANSDERMAL SYSTEM [Suspect]
     Indication: CYSTITIS INTERSTITIAL
     Dosage: 225 UG; EVERY HOUR; TRANSDERMAL
     Route: 062
     Dates: start: 20080512, end: 20080515
  4. FENTANYL TRANSDERMAL SYSTEM [Suspect]
     Indication: FIBROMYALGIA
     Dosage: 225 UG; EVERY HOUR; TRANSDERMAL
     Route: 062
     Dates: start: 20080512, end: 20080515
  5. NORCO [Concomitant]
  6. AMBIEN [Concomitant]
  7. KLONOPIN [Concomitant]

REACTIONS (13)
  - ANXIETY [None]
  - APPLICATION SITE BLEEDING [None]
  - APPLICATION SITE RASH [None]
  - BLADDER PAIN [None]
  - CONDITION AGGRAVATED [None]
  - DEVICE FAILURE [None]
  - DRUG INEFFECTIVE [None]
  - HYPERAESTHESIA [None]
  - HYPERHIDROSIS [None]
  - MUSCLE TWITCHING [None]
  - PAIN [None]
  - POLLAKIURIA [None]
  - VENTRICULAR EXTRASYSTOLES [None]
